FAERS Safety Report 7282079-5 (Version None)
Quarter: 2011Q1

REPORT INFORMATION
  Report Type: 
  Country: None (occurrence: None)
  Receive Date: 20110208
  Receipt Date: 20110204
  Transmission Date: 20110831
  Serious: Yes (Hospitalization, Other)
  Sender: FDA-Public Use
  Company Number: US-RB-019811-10

PATIENT
  Age: 30 Year
  Sex: Female

DRUGS (2)
  1. SUBOXONE [Suspect]
     Indication: PRODUCT USED FOR UNKNOWN INDICATION
     Dosage: UNKNOWN DOSING DETAILS
     Route: 065
  2. SUBOXONE [Suspect]
     Indication: PRODUCT USED FOR UNKNOWN INDICATION
     Dosage: DOSING INFORMATION UNKNOWN
     Route: 065

REACTIONS (13)
  - DEHYDRATION [None]
  - DRUG WITHDRAWAL SYNDROME [None]
  - PAIN [None]
  - OVERDOSE [None]
  - HEPATIC ENZYME INCREASED [None]
  - DRUG DEPENDENCE [None]
  - ANXIETY [None]
  - DRUG EXPOSURE DURING PREGNANCY [None]
  - ABDOMINAL PAIN UPPER [None]
  - MALAISE [None]
  - MUSCLE SPASMS [None]
  - ASTHENIA [None]
  - FATIGUE [None]
